FAERS Safety Report 20612194 (Version 1)
Quarter: 2022Q1

REPORT INFORMATION
  Report Type: Other
  Country: IT (occurrence: IT)
  Receive Date: 20220318
  Receipt Date: 20220318
  Transmission Date: 20220424
  Serious: Yes (Other)
  Sender: FDA-Public Use
  Company Number: IT-CELLTRION HEALTHCARE HUNGARY KFT-2022IT002430

PATIENT

DRUGS (17)
  1. RITUXIMAB [Suspect]
     Active Substance: RITUXIMAB
     Indication: Hairy cell leukaemia
     Dosage: DOSE 2
     Route: 065
  2. RITUXIMAB [Suspect]
     Active Substance: RITUXIMAB
     Dosage: DOSE 3
     Route: 065
  3. RITUXIMAB [Suspect]
     Active Substance: RITUXIMAB
     Dosage: DOSE 7
     Route: 065
  4. RITUXIMAB [Suspect]
     Active Substance: RITUXIMAB
     Dosage: DOSE 1
     Route: 065
  5. RITUXIMAB [Suspect]
     Active Substance: RITUXIMAB
     Dosage: DOSE 6
     Route: 065
  6. RITUXIMAB [Suspect]
     Active Substance: RITUXIMAB
     Dosage: DOSE 8
     Route: 065
  7. RITUXIMAB [Suspect]
     Active Substance: RITUXIMAB
     Dosage: DOSE 5
     Route: 065
  8. RITUXIMAB [Suspect]
     Active Substance: RITUXIMAB
     Dosage: DOSE 4
     Route: 065
  9. VEMURAFENIB [Suspect]
     Active Substance: VEMURAFENIB
     Indication: Hairy cell leukaemia
     Dosage: BID
     Route: 065
  10. VEMURAFENIB [Suspect]
     Active Substance: VEMURAFENIB
     Dosage: BID FOR 2 WEEKS
     Route: 065
  11. VEMURAFENIB [Suspect]
     Active Substance: VEMURAFENIB
     Dosage: BID ALTERNATING 4 WEEKS ON WITH 4 WEEKS OFF-THERAPY
     Route: 065
  12. VEMURAFENIB [Suspect]
     Active Substance: VEMURAFENIB
     Dosage: MONOTHERAPY FOR 14 WEEKS
     Route: 065
  13. VEMURAFENIB [Suspect]
     Active Substance: VEMURAFENIB
     Dosage: BID (DELIVERED FOR 12 WEEKS)
     Route: 065
  14. VEMURAFENIB [Suspect]
     Active Substance: VEMURAFENIB
     Dosage: PHASE-2 TRIAL OF VEMURAFENIB 8 WEEKS
     Route: 065
  15. INTERFERON [Suspect]
     Active Substance: INTERFERON
     Indication: Hairy cell leukaemia
     Dosage: REPEATED SEVERAL TIMES
     Route: 065
  16. CLADRIBINE [Suspect]
     Active Substance: CLADRIBINE
     Indication: Hairy cell leukaemia
     Dosage: REPEATED THREE TIMES
     Route: 065
  17. PENTOSTATIN [Suspect]
     Active Substance: PENTOSTATIN
     Indication: Hairy cell leukaemia
     Dosage: REPEATED TWICE
     Route: 065

REACTIONS (3)
  - Off label use [Unknown]
  - Hairy cell leukaemia recurrent [Recovered/Resolved]
  - Infusion related reaction [Unknown]

NARRATIVE: CASE EVENT DATE: 20130101
